FAERS Safety Report 9566888 (Version 1)
Quarter: 2013Q3

REPORT INFORMATION
  Report Type: Spontaneous
  Country: US (occurrence: US)
  Receive Date: 20130930
  Receipt Date: 20130930
  Transmission Date: 20140515
  Serious: No
  Sender: FDA-Public Use
  Company Number: US-AMGEN-USASP2012060351

PATIENT
  Age: 60 Year
  Sex: Female
  Weight: 72.56 kg

DRUGS (2)
  1. ENBREL [Suspect]
     Indication: PRODUCT USED FOR UNKNOWN INDICATION
     Dosage: 50 MG, QWK
  2. SUDAFED                            /00076302/ [Concomitant]
     Dosage: 30 MG, UNK

REACTIONS (3)
  - Photosensitivity reaction [Unknown]
  - Vision blurred [Unknown]
  - Intraocular pressure increased [Unknown]
